FAERS Safety Report 7527411-X (Version None)
Quarter: 2011Q2

REPORT INFORMATION
  Report Type: 
  Country: None (occurrence: None)
  Receive Date: 20110603
  Receipt Date: 20110516
  Transmission Date: 20111010
  Serious: Yes (Other)
  Sender: FDA-Public Use
  Company Number: JPI-P-014477

PATIENT
  Age: 31 Year
  Sex: Female
  Weight: 77.1115 kg

DRUGS (4)
  1. METFFORMIN HYDROCHLORIDE [Concomitant]
  2. XYREM [Suspect]
     Indication: CATAPLEXY
     Dosage: 4.5 GM (2.25 MG, 2 IN 1 D), ORAL
     Route: 048
     Dates: start: 20110215, end: 20110308
  3. RABEPRAZOLE SODIUM [Concomitant]
  4. AMPHETAMINE DEXTROAMPHETAMINE MIXED SALTS [Concomitant]

REACTIONS (6)
  - DEPRESSION [None]
  - DEPRESSED LEVEL OF CONSCIOUSNESS [None]
  - FATIGUE [None]
  - PREGNANCY [None]
  - ABORTION SPONTANEOUS [None]
  - DRUG EXPOSURE DURING PREGNANCY [None]
